FAERS Safety Report 15760593 (Version 6)
Quarter: 2019Q2

REPORT INFORMATION
  Report Type: Spontaneous
  Country: US (occurrence: US)
  Receive Date: 20181226
  Receipt Date: 20190626
  Transmission Date: 20190711
  Serious: No
  Sender: FDA-Public Use
  Company Number: US-PFIZER INC-2018525358

PATIENT
  Age: 51 Year
  Sex: Female
  Weight: 53.52 kg

DRUGS (28)
  1. DOCETAXEL. [Suspect]
     Active Substance: DOCETAXEL
     Dosage: 110 MG, SINGLE
     Dates: start: 20130502, end: 20130502
  2. DOCETAXEL. [Suspect]
     Active Substance: DOCETAXEL
     Dosage: 110 MG, SINGLE
     Dates: start: 20130523, end: 20130523
  3. DOCETAXEL. [Suspect]
     Active Substance: DOCETAXEL
     Indication: CHEMOTHERAPY
     Dosage: UNK
     Dates: start: 20130328, end: 20130826
  4. FLEXERIL [Concomitant]
     Active Substance: CYCLOBENZAPRINE HYDROCHLORIDE
     Dosage: 10 MG, UNK
  5. NEOSAR [Concomitant]
     Active Substance: CYCLOPHOSPHAMIDE
     Indication: CHEMOTHERAPY
     Dosage: UNK
  6. AMLODIPINE BESILATE [Concomitant]
     Active Substance: AMLODIPINE BESYLATE
     Dosage: UNK
     Dates: start: 2008, end: 2012
  7. TAMOXIFEN [Concomitant]
     Active Substance: TAMOXIFEN
     Indication: HORMONE THERAPY
     Dosage: UNK
     Dates: start: 20130815
  8. DOCETAXEL. [Suspect]
     Active Substance: DOCETAXEL
     Dosage: 110 MG, SINGLE
     Dates: start: 20130613, end: 20130613
  9. PHILLIPS STOOL SOFTENER BULK DOCUSATE [Concomitant]
     Active Substance: DOCUSATE SODIUM
     Dosage: UNK
  10. KEFLEX [Concomitant]
     Active Substance: CEPHALEXIN
     Dosage: 500 MG, UNK
  11. CLARITONE [Concomitant]
     Dosage: UNK
  12. DOCEFREZ [Suspect]
     Active Substance: DOCETAXEL ANHYDROUS
     Indication: CHEMOTHERAPY
     Dosage: UNK
     Dates: start: 20130328, end: 20130826
  13. ATENOLOL. [Concomitant]
     Active Substance: ATENOLOL
     Dosage: UNK
     Dates: start: 2008, end: 2012
  14. ATENOLOL. [Concomitant]
     Active Substance: ATENOLOL
     Dosage: 25 MG, UNK
  15. AMLODIPINE BESILATE [Concomitant]
     Active Substance: AMLODIPINE BESYLATE
     Dosage: 2.5 MG, UNK
  16. EFFEXOR XR [Concomitant]
     Active Substance: VENLAFAXINE HYDROCHLORIDE
     Dosage: 37.5 MG, UNK (24 HOURS)
  17. DOCETAXEL. [Suspect]
     Active Substance: DOCETAXEL
     Dosage: 110 MG, SINGLE
     Dates: start: 20130705, end: 20130705
  18. HYDROCHLOROTHIAZIDE. [Concomitant]
     Active Substance: HYDROCHLOROTHIAZIDE
     Dosage: 25 MG, UNK
  19. LORAZEPAM. [Concomitant]
     Active Substance: LORAZEPAM
     Dosage: 0.5 MG, UNK
  20. POTASSIUM [Concomitant]
     Active Substance: POTASSIUM
     Dosage: UNK
  21. PROCHLORPERAZINE MALEATE. [Concomitant]
     Active Substance: PROCHLORPERAZINE MALEATE
     Dosage: 10 MG, UNK
  22. CLARITIN [Concomitant]
     Active Substance: LORATADINE
     Dosage: UNK
  23. DOCETAXEL. [Suspect]
     Active Substance: DOCETAXEL
     Indication: BREAST CANCER METASTATIC
     Dosage: 110 MG, SINGLE
     Dates: start: 20130328, end: 20130328
  24. DOCETAXEL. [Suspect]
     Active Substance: DOCETAXEL
     Dosage: 100 MG, SINGLE
     Dates: start: 20130726, end: 20130726
  25. TAXOTERE [Concomitant]
     Active Substance: DOCETAXEL
     Indication: CHEMOTHERAPY
     Dosage: UNK
  26. CYTOXAN [Concomitant]
     Active Substance: CYCLOPHOSPHAMIDE
     Indication: CHEMOTHERAPY
     Dosage: UNK
  27. OXYCODONE HYDROCHLORIDE. [Concomitant]
     Active Substance: OXYCODONE HYDROCHLORIDE
     Dosage: 5 MG, UNK
  28. DEXAMETHASONE. [Concomitant]
     Active Substance: DEXAMETHASONE
     Dosage: 4 MG, UNK

REACTIONS (7)
  - Hair disorder [Not Recovered/Not Resolved]
  - Anxiety [Unknown]
  - Depression [Unknown]
  - Madarosis [Not Recovered/Not Resolved]
  - Hair colour changes [Not Recovered/Not Resolved]
  - Hair texture abnormal [Not Recovered/Not Resolved]
  - Alopecia [Not Recovered/Not Resolved]

NARRATIVE: CASE EVENT DATE: 20130906
